FAERS Safety Report 11193112 (Version 1)
Quarter: 2015Q2

REPORT INFORMATION
  Report Type: Spontaneous
  Country: US (occurrence: US)
  Receive Date: 20150616
  Receipt Date: 20150616
  Transmission Date: 20150821
  Serious: Yes (Other)
  Sender: FDA-Public Use
  Company Number: US-TAKEDA-2014MPI002150

PATIENT
  Sex: Male
  Weight: 124.26 kg

DRUGS (1)
  1. VELCADE [Suspect]
     Active Substance: BORTEZOMIB
     Indication: MANTLE CELL LYMPHOMA
     Dosage: 3.07 MG, 1/WEEK X 4 CYCLES
     Route: 058
     Dates: end: 20140729

REACTIONS (2)
  - Cough [Not Recovered/Not Resolved]
  - Loss of consciousness [Not Recovered/Not Resolved]
